FAERS Safety Report 16056694 (Version 6)
Quarter: 2019Q1

REPORT INFORMATION
  Report Type: Spontaneous
  Country: KR (occurrence: KR)
  Receive Date: 20190311
  Receipt Date: 20190322
  Transmission Date: 20190418
  Serious: Yes (Other)
  Sender: FDA-Public Use
  Company Number: PHHY2019KR048018

PATIENT
  Age: 26 Year
  Sex: Male

DRUGS (3)
  1. AZATHIOPRINE. [Suspect]
     Active Substance: AZATHIOPRINE
     Dosage: 100 MG, UNK
     Route: 065
  2. AZATHIOPRINE. [Suspect]
     Active Substance: AZATHIOPRINE
     Indication: BEHCET^S SYNDROME
     Dosage: 75 MG, UNK
     Route: 065
  3. CICLOSPORIN [Suspect]
     Active Substance: CYCLOSPORINE
     Indication: BEHCET^S SYNDROME
     Dosage: 50 MG, UNK
     Route: 048

REACTIONS (8)
  - Disease recurrence [Recovered/Resolved]
  - Cataract [Recovered/Resolved]
  - Macular oedema [Recovering/Resolving]
  - Eye inflammation [Recovered/Resolved]
  - Visual impairment [Recovered/Resolved]
  - Uveitis [Recovered/Resolved]
  - Retinal vasculitis [Recovering/Resolving]
  - Product use in unapproved indication [Unknown]
